FAERS Safety Report 8354955-3 (Version None)
Quarter: 2012Q2

REPORT INFORMATION
  Report Type: 
  Country: None (occurrence: None)
  Receive Date: 20120511
  Receipt Date: 20120508
  Transmission Date: 20120825
  Serious: Yes (Hospitalization)
  Sender: FDA-Public Use
  Company Number: US-TEVA-337208USA

PATIENT
  Sex: Female
  Weight: 74.91 kg

DRUGS (3)
  1. HYDROCODONE W/IBUPROFEN [Suspect]
     Indication: PAIN
     Dates: start: 20100101, end: 20100101
  2. DULOXETINE HYDROCHLORIDE [Suspect]
     Indication: FIBROMYALGIA
  3. PREGABALIN [Suspect]
     Indication: FIBROMYALGIA
     Dosage: 600 MILLIGRAM;
     Dates: end: 20110601

REACTIONS (2)
  - INTERVERTEBRAL DISC PROTRUSION [None]
  - DRUG INEFFECTIVE [None]
